FAERS Safety Report 21390742 (Version 1)
Quarter: 2022Q3

REPORT INFORMATION
  Report Type: Spontaneous
  Country: US (occurrence: US)
  Receive Date: 20220929
  Receipt Date: 20220929
  Transmission Date: 20221027
  Serious: No
  Sender: FDA-Public Use
  Company Number: US-PFIZER INC-202201192665

PATIENT
  Age: 76 Year
  Sex: Female
  Weight: 53.07 kg

DRUGS (1)
  1. IBRANCE [Suspect]
     Active Substance: PALBOCICLIB
     Dosage: UNK, CYCLIC(^ONCE A DAY FOR THREE WEEKS AND THEN OFF A WEEK.^)

REACTIONS (1)
  - Full blood count abnormal [Unknown]
